FAERS Safety Report 5688377-0 (Version None)
Quarter: 2008Q1

REPORT INFORMATION
  Report Type: 
  Country: None (occurrence: None)
  Receive Date: 20080331
  Receipt Date: 20080319
  Transmission Date: 20080703
  Serious: Yes (Hospitalization, Other)
  Sender: FDA-Public Use
  Company Number: PHBS2008CN03509

PATIENT
  Age: 29 Year
  Sex: Female
  Weight: 40 kg

DRUGS (3)
  1. GLEEVEC [Suspect]
     Indication: CHRONIC MYELOID LEUKAEMIA
     Dosage: 600 MG/D
     Route: 048
     Dates: start: 20080303, end: 20080318
  2. ETAMSYLATE [Concomitant]
     Route: 065
  3. ANTIBIOTICS [Concomitant]
     Route: 065

REACTIONS (11)
  - ABDOMINAL DISTENSION [None]
  - COMPUTERISED TOMOGRAM ABNORMAL [None]
  - CONJUNCTIVAL HYPERAEMIA [None]
  - HEPATOSPLENOMEGALY [None]
  - HYPOACUSIS [None]
  - PERICARDIAL EFFUSION [None]
  - PLEURAL EFFUSION [None]
  - RESPIRATORY RATE INCREASED [None]
  - SKIN OEDEMA [None]
  - ULTRASOUND BILIARY TRACT ABNORMAL [None]
  - VOMITING [None]
